FAERS Safety Report 24296252 (Version 1)
Quarter: 2024Q3

REPORT INFORMATION
  Report Type: Report from Study
  Country: US (occurrence: US)
  Receive Date: 20240909
  Receipt Date: 20240909
  Transmission Date: 20241017
  Serious: Yes (Other)
  Sender: AUROBINDO
  Company Number: US-AUROBINDO-AUR-APL-2024-043491

PATIENT
  Age: 56 Year
  Sex: Female

DRUGS (1)
  1. MILRINONE LACTATE [Suspect]
     Active Substance: MILRINONE LACTATE
     Indication: Cardiac failure
     Dosage: UNK
     Route: 042

REACTIONS (1)
  - Drug ineffective [Unknown]
